FAERS Safety Report 9358479 (Version 1)
Quarter: 2013Q2

REPORT INFORMATION
  Report Type: Spontaneous
  Country: US (occurrence: None)
  Receive Date: 20130619
  Receipt Date: 20130619
  Transmission Date: 20140414
  Serious: Yes (Hospitalization)
  Sender: FDA-Public Use
  Company Number: None

PATIENT
  Age: 36 Year
  Sex: Female
  Weight: 63.4 kg

DRUGS (11)
  1. SULFAMETHOXAZOLE/TRIMETHOPRIM [Suspect]
     Indication: STAPHYLOCOCCAL INFECTION
     Route: 048
     Dates: start: 20130529, end: 20130531
  2. MINOCYCLINE 100 MG [Suspect]
     Route: 048
     Dates: start: 20130529, end: 20130531
  3. NEXIUM [Concomitant]
  4. MULTIVITAMIN [Concomitant]
  5. VITAMIN B6 [Concomitant]
  6. VIMPAT [Concomitant]
  7. LEVETIRACETAM [Concomitant]
  8. CLONAZEPAM [Concomitant]
  9. CHOLECALCIFEROL [Concomitant]
  10. ALBUTEROL INHALATION SOLUTION [Concomitant]
  11. ALOE VESTA ANTIFUNGAL [Concomitant]

REACTIONS (2)
  - Angioedema [None]
  - Stevens-Johnson syndrome [None]
